FAERS Safety Report 6005627-1 (Version None)
Quarter: 2008Q4

REPORT INFORMATION
  Report Type: 
  Country: None (occurrence: None)
  Receive Date: 20081217
  Receipt Date: 20081208
  Transmission Date: 20090506
  Serious: Yes (Death)
  Sender: FDA-Public Use
  Company Number: CA-ABBOTT-08P-028-0490077-00

PATIENT
  Sex: Male

DRUGS (4)
  1. MAVIK [Suspect]
     Indication: DIABETES MELLITUS
     Route: 048
     Dates: start: 20080512, end: 20080813
  2. MAVIK [Suspect]
     Indication: HYPERTENSION
  3. ATORVASTATIN CALCIUM [Concomitant]
     Indication: BLOOD CHOLESTEROL INCREASED
     Route: 048
     Dates: start: 20051221, end: 20080813
  4. METFORMIN HCL [Concomitant]
     Indication: DIABETES MELLITUS
     Route: 048
     Dates: start: 20051221, end: 20080813

REACTIONS (1)
  - MYOCARDIAL INFARCTION [None]
